FAERS Safety Report 4999587-X (Version None)
Quarter: 2006Q2

REPORT INFORMATION
  Report Type: 
  Country: None (occurrence: None)
  Receive Date: 20060511
  Receipt Date: 20060104
  Transmission Date: 20061013
  Serious: Yes (Hospitalization, Other)
  Sender: FDA-Public Use
  Company Number: US-MERCK-0601USA00568

PATIENT
  Age: 65 Year
  Sex: Male
  Weight: 143 kg

DRUGS (10)
  1. VIOXX [Suspect]
     Indication: RHEUMATOID ARTHRITIS
     Route: 048
     Dates: start: 20010501, end: 20020201
  2. HYDROCHLOROTHIAZIDE [Concomitant]
     Indication: FLUID RETENTION
     Route: 065
  3. VALTREX [Concomitant]
     Indication: HERPES VIRUS INFECTION
     Route: 065
  4. FLUOCINONIDE [Concomitant]
     Route: 065
  5. CEPHALEXIN [Concomitant]
     Indication: BACTERIAL INFECTION
     Route: 065
  6. CIPRO [Concomitant]
     Route: 065
  7. ASPIRIN [Concomitant]
     Indication: PROPHYLAXIS
     Route: 065
  8. METHOTREXATE [Concomitant]
     Indication: RHEUMATOID ARTHRITIS
     Route: 065
  9. PLAQUENIL [Concomitant]
     Indication: RHEUMATOID ARTHRITIS
     Route: 065
  10. HYDROCODONE HYDROCHLORIDE [Concomitant]
     Indication: PAIN
     Route: 065

REACTIONS (15)
  - AORTIC STENOSIS [None]
  - ATRIAL FIBRILLATION [None]
  - CARDIAC DISORDER [None]
  - CELLULITIS [None]
  - CORONARY ARTERY DISEASE [None]
  - DIABETES MELLITUS NON-INSULIN-DEPENDENT [None]
  - EMBOLIC STROKE [None]
  - HYPERLIPIDAEMIA [None]
  - HYPERTENSION [None]
  - HYPOKALAEMIA [None]
  - MYOCARDIAL INFARCTION [None]
  - RENAL FAILURE [None]
  - SKIN DISORDER [None]
  - URINARY INCONTINENCE [None]
  - VISUAL FIELD DEFECT [None]
